FAERS Safety Report 15801739 (Version 4)
Quarter: 2019Q2

REPORT INFORMATION
  Report Type: Spontaneous
  Country: US (occurrence: US)
  Receive Date: 20190109
  Receipt Date: 20190604
  Transmission Date: 20190711
  Serious: Yes (Death, Other)
  Sender: FDA-Public Use
  Company Number: US-PFIZER INC-2019011978

PATIENT
  Age: 91 Year
  Sex: Female
  Weight: 64.85 kg

DRUGS (3)
  1. AROMASIN [Suspect]
     Active Substance: EXEMESTANE
     Dosage: UNK
     Dates: start: 201901
  2. AROMASIN [Suspect]
     Active Substance: EXEMESTANE
     Indication: BREAST CANCER METASTATIC
     Dosage: 25 MG, UNK
  3. AROMASIN [Suspect]
     Active Substance: EXEMESTANE
     Dosage: 10 MG, TWICE
     Dates: start: 20181226

REACTIONS (9)
  - Decreased appetite [Unknown]
  - Body height decreased [Unknown]
  - Neoplasm progression [Fatal]
  - Diarrhoea [Unknown]
  - Renal injury [Unknown]
  - Fall [Fatal]
  - Liver injury [Unknown]
  - Alopecia [Unknown]
  - Nausea [Unknown]
